FAERS Safety Report 7698701-5 (Version None)
Quarter: 2011Q3

REPORT INFORMATION
  Report Type: 
  Country: None (occurrence: None)
  Receive Date: 20110819
  Receipt Date: 20110815
  Transmission Date: 20111222
  Serious: Yes (Hospitalization, Other)
  Sender: FDA-Public Use
  Company Number: US-BAYER-2011-073033

PATIENT
  Age: 45 Year
  Sex: Female

DRUGS (4)
  1. CIPROFLOXACIN [Interacting]
     Indication: URINARY TRACT INFECTION
     Dosage: UNK
     Dates: start: 20110701
  2. MEDICATION UNSPECIFIED [Interacting]
  3. COPAXONE [Suspect]
     Indication: MULTIPLE SCLEROSIS
     Dosage: 20 MG, UNK
     Route: 058
     Dates: start: 20110720, end: 20110727
  4. COPAXONE [Suspect]
     Dosage: 20 MG, UNK
     Route: 058
     Dates: start: 20110730

REACTIONS (1)
  - BLOOD PRESSURE DECREASED [None]
